FAERS Safety Report 17005063 (Version 7)
Quarter: 2019Q4

REPORT INFORMATION
  Report Type: Spontaneous
  Country: US (occurrence: US)
  Receive Date: 20191107
  Receipt Date: 20191213
  Transmission Date: 20200122
  Serious: Yes (Hospitalization, Other)
  Sender: FDA-Public Use
  Company Number: US-JNJFOC-20191044750

PATIENT
  Sex: Male

DRUGS (2)
  1. RISPERDAL [Suspect]
     Active Substance: RISPERIDONE
     Indication: PRODUCT USED FOR UNKNOWN INDICATION
     Route: 048
  2. RISPERDAL [Suspect]
     Active Substance: RISPERIDONE
     Route: 048
     Dates: end: 1996

REACTIONS (17)
  - Swelling [Unknown]
  - Hospitalisation [Recovered/Resolved]
  - Chest pain [Unknown]
  - Weight increased [Unknown]
  - Tenderness [Unknown]
  - Surgery [Unknown]
  - Product dose omission [Unknown]
  - Haemoptysis [Unknown]
  - Dizziness [Unknown]
  - Dyspnoea [Unknown]
  - Myocardial infarction [Unknown]
  - Heart rate increased [Unknown]
  - Stress [Recovered/Resolved]
  - Back pain [Unknown]
  - Agitation [Not Recovered/Not Resolved]
  - Abdominal discomfort [Unknown]
  - Nausea [Unknown]

NARRATIVE: CASE EVENT DATE: 2019
